FAERS Safety Report 4725975-2 (Version None)
Quarter: 2005Q3

REPORT INFORMATION
  Report Type: 
  Country: None (occurrence: None)
  Receive Date: 20050727
  Receipt Date: 20050715
  Transmission Date: 20060218
  Serious: Yes (Hospitalization)
  Sender: FDA-Public Use
  Company Number: ES-GLAXOSMITHKLINE-B0388022A

PATIENT

DRUGS (4)
  1. KIVEXA [Suspect]
     Indication: HIV INFECTION
     Dosage: 1TAB PER DAY
     Route: 048
     Dates: start: 20050627
  2. SUSTIVA [Suspect]
     Indication: HIV INFECTION
     Dosage: 600MG PER DAY
     Route: 048
     Dates: start: 20050627
  3. SEPTRIM [Concomitant]
     Route: 048
     Dates: start: 20050623
  4. FERROGRADUMET [Concomitant]
     Indication: ANAEMIA
     Route: 048
     Dates: start: 20050624

REACTIONS (3)
  - INSOMNIA [None]
  - PHARYNGOLARYNGEAL PAIN [None]
  - RASH [None]
